FAERS Safety Report 5597096-0 (Version None)
Quarter: 2008Q1

REPORT INFORMATION
  Report Type: 
  Country: None (occurrence: None)
  Receive Date: 20080121
  Receipt Date: 20080111
  Transmission Date: 20080703
  Serious: Yes (Hospitalization, Other)
  Sender: FDA-Public Use
  Company Number: PHBS2007JP18230

PATIENT
  Age: 83 Year
  Sex: Female
  Weight: 39 kg

DRUGS (12)
  1. PARLODEL [Suspect]
     Indication: PARKINSONISM
     Dosage: 2.5 MG, BID
     Route: 048
  2. PARLODEL [Suspect]
     Dosage: 2.5 MG, QD
     Route: 048
  3. PARLODEL [Suspect]
     Dosage: 2.5 MG, BID
     Route: 048
  4. SYMMETREL [Suspect]
     Indication: PARKINSONISM
     Dosage: 1 DF, BID
     Route: 048
  5. INDERAL [Suspect]
     Indication: ATRIAL FIBRILLATION
     Dosage: 1 DF, QD
     Route: 048
     Dates: end: 20071106
  6. CARBIDOPA AND LEVODOPA [Concomitant]
     Indication: PARKINSONISM
     Dosage: 6 DF, UNK
     Route: 048
  7. EC DOPARL [Concomitant]
     Indication: PARKINSONISM
     Dosage: 3 DF, UNK
     Route: 048
     Dates: start: 20071117
  8. NU LOTAN [Concomitant]
     Indication: HYPERTENSION
     Dosage: 1 DF, UNK
     Route: 048
     Dates: start: 20071212
  9. POTASSIUM GLUCONATE TAB [Concomitant]
     Indication: HYPOKALAEMIA
     Dosage: 3 DF, UNK
     Route: 048
     Dates: start: 20071119
  10. URSO 250 [Concomitant]
     Indication: LIVER DISORDER
     Dosage: 3 DF, UNK
     Route: 048
     Dates: start: 20071219
  11. MAGNESIUM OXIDE [Concomitant]
     Indication: CONSTIPATION
     Dosage: 1.5 G, UNK
     Route: 048
     Dates: start: 20071119
  12. NEO-MINOPHAGEN C [Concomitant]
     Route: 042

REACTIONS (4)
  - ANOREXIA [None]
  - BRADYCARDIA [None]
  - CONSTIPATION [None]
  - HYPOKALAEMIA [None]
